FAERS Safety Report 5322088-6 (Version None)
Quarter: 2007Q2

REPORT INFORMATION
  Report Type: 
  Country: None (occurrence: None)
  Receive Date: 20070511
  Receipt Date: 20070503
  Transmission Date: 20071010
  Serious: Yes (Death, Other)
  Sender: FDA-Public Use
  Company Number: ES-JNJFOC-20070501317

PATIENT
  Age: 73 Year
  Sex: Male

DRUGS (2)
  1. REMICADE [Suspect]
     Indication: RHEUMATOID ARTHRITIS
     Route: 042
  2. ADALIMUMAB [Suspect]
     Indication: RHEUMATOID ARTHRITIS

REACTIONS (2)
  - LOWER RESPIRATORY TRACT INFECTION [None]
  - PANCREATIC CARCINOMA [None]
